FAERS Safety Report 5281948-5 (Version None)
Quarter: 2007Q1

REPORT INFORMATION
  Report Type: 
  Country: None (occurrence: None)
  Receive Date: 20070330
  Receipt Date: 20070320
  Transmission Date: 20070707
  Serious: Yes (Life-Threatening, Hospitalization)
  Sender: FDA-Public Use
  Company Number: 2002SE05402

PATIENT
  Age: 20727 Day
  Sex: Male
  Weight: 80 kg

DRUGS (1)
  1. CANDESARTAN CILEXETIL HYDROCHLOROTHIAZIDE [Suspect]
     Indication: HYPERTENSION
     Route: 048
     Dates: start: 20020731, end: 20020820

REACTIONS (1)
  - ANGINA UNSTABLE [None]
